FAERS Safety Report 8403013-8 (Version None)
Quarter: 2012Q2

REPORT INFORMATION
  Report Type: 
  Country: None (occurrence: None)
  Receive Date: 20120601
  Receipt Date: 20120530
  Transmission Date: 20120825
  Serious: Yes (Disabling)
  Sender: FDA-Public Use
  Company Number: CH-PFIZER INC-2012129730

PATIENT
  Age: 72 Year
  Sex: Male

DRUGS (3)
  1. CYTOSAR-U [Suspect]
     Indication: BURKITT'S LYMPHOMA
     Dosage: UNK
     Route: 037
     Dates: start: 20090101
  2. METHOTREXATE SODIUM [Suspect]
     Indication: BURKITT'S LYMPHOMA
     Dosage: UNK
     Route: 037
     Dates: start: 20090101
  3. SOLU-CORTEF [Concomitant]
     Indication: BURKITT'S LYMPHOMA
     Dosage: UNK
     Route: 037
     Dates: start: 20090101

REACTIONS (2)
  - TOXIC ENCEPHALOPATHY [None]
  - DEMENTIA [None]
